FAERS Safety Report 15799939 (Version 1)
Quarter: 2019Q1

REPORT INFORMATION
  Report Type: Spontaneous
  Country: US (occurrence: US)
  Receive Date: 20190108
  Receipt Date: 20190108
  Transmission Date: 20190417
  Serious: No
  Sender: FDA-Public Use
  Company Number: US-ARRAY-2018-04836

PATIENT

DRUGS (6)
  1. MEKTOVI [Suspect]
     Active Substance: BINIMETINIB
     Indication: COLON CANCER STAGE IV
     Dosage: 45 MG, BID
     Dates: start: 20181127
  2. METFORMIN [Concomitant]
     Active Substance: METFORMIN HYDROCHLORIDE
     Indication: DIABETES MELLITUS
     Dosage: UNK
  3. CETUXIMAB. [Concomitant]
     Active Substance: CETUXIMAB
     Indication: COLON CANCER
     Dosage: UNK
     Dates: start: 20181126
  4. CARVEDILOL. [Concomitant]
     Active Substance: CARVEDILOL
     Indication: BLOOD PRESSURE INCREASED
     Dosage: 6.25 MG, BID
     Dates: start: 201706
  5. BRAFTOVI [Suspect]
     Active Substance: ENCORAFENIB
     Indication: COLON CANCER STAGE IV
     Dosage: 300 MG, QD
     Dates: start: 20181127
  6. QUINAPRIL. [Concomitant]
     Active Substance: QUINAPRIL
     Indication: BLOOD PRESSURE INCREASED
     Dosage: 40MG IN AM AND 20 MG IN PM

REACTIONS (7)
  - Product use in unapproved indication [Unknown]
  - Therapeutic response unexpected [Unknown]
  - Somnolence [Not Recovered/Not Resolved]
  - Fatigue [Not Recovered/Not Resolved]
  - Pruritus [Not Recovered/Not Resolved]
  - Diarrhoea [Not Recovered/Not Resolved]
  - Nausea [Not Recovered/Not Resolved]

NARRATIVE: CASE EVENT DATE: 20181127
